FAERS Safety Report 5378613-2 (Version None)
Quarter: 2007Q3

REPORT INFORMATION
  Report Type: 
  Country: None (occurrence: None)
  Receive Date: 20070702
  Receipt Date: 20070619
  Transmission Date: 20080115
  Serious: Yes (Hospitalization)
  Sender: FDA-Public Use
  Company Number: 2007SP012205

PATIENT
  Age: 47 Year
  Sex: Female

DRUGS (4)
  1. PEGETRON (PEGINTERFERON ALPHA2B W/RIBAVIRIN) [Suspect]
     Indication: HEPATITIS C
     Dosage: SEE IMAGE
     Dates: start: 20070213, end: 20070613
  2. PEGETRON (PEGINTERFERON ALPHA2B W/RIBAVIRIN) [Suspect]
     Indication: HEPATITIS C
     Dosage: SEE IMAGE
     Dates: start: 20070213, end: 20070613
  3. PLAQUENIL [Concomitant]
  4. EFFEXOR [Concomitant]

REACTIONS (2)
  - ARTHRITIS BACTERIAL [None]
  - IATROGENIC INFECTION [None]
